FAERS Safety Report 6765098-4 (Version None)
Quarter: 2010Q2

REPORT INFORMATION
  Report Type: 
  Country: None (occurrence: None)
  Receive Date: 20100610
  Receipt Date: 20100604
  Transmission Date: 20101027
  Serious: Yes (Life-Threatening, Hospitalization)
  Sender: FDA-Public Use
  Company Number: GB-AMGEN-KDL392336

PATIENT
  Age: 28 Year
  Sex: Male
  Weight: 76 kg

DRUGS (8)
  1. NEULASTA [Suspect]
     Indication: CHEMOTHERAPY
     Route: 058
     Dates: start: 20100601
  2. ETOPOSIDE [Suspect]
     Route: 042
     Dates: start: 20091229, end: 20091231
  3. CISPLATIN [Suspect]
     Route: 042
     Dates: start: 20091229, end: 20091230
  4. BLEOMYCIN [Concomitant]
     Route: 042
     Dates: start: 20091230, end: 20091230
  5. APREPITANT [Concomitant]
     Dates: start: 20091229, end: 20091231
  6. ONDANSETRON [Concomitant]
     Dates: start: 20091229, end: 20100102
  7. DEXAMETHASONE [Concomitant]
     Dates: start: 20091229, end: 20100102
  8. METOCLOPRAMIDE [Concomitant]
     Route: 048
     Dates: start: 20091229

REACTIONS (3)
  - DRUG INEFFECTIVE [None]
  - FACIAL PAIN [None]
  - FEBRILE NEUTROPENIA [None]
